FAERS Safety Report 8397453-3 (Version None)
Quarter: 2012Q2

REPORT INFORMATION
  Report Type: 
  Country: None (occurrence: None)
  Receive Date: 20120529
  Receipt Date: 20120529
  Transmission Date: 20120825
  Serious: Yes (Other)
  Sender: FDA-Public Use
  Company Number: None

PATIENT
  Age: 44 Year
  Sex: Male
  Weight: 88.4514 kg

DRUGS (1)
  1. FINASTERIDE [Suspect]
     Indication: ADVERSE DRUG REACTION
     Dosage: 1MG 1XDAILY PO
     Route: 048
     Dates: start: 20050901, end: 20120526

REACTIONS (6)
  - INSOMNIA [None]
  - DEPRESSION [None]
  - MENTAL IMPAIRMENT [None]
  - FATIGUE [None]
  - DISTURBANCE IN ATTENTION [None]
  - MEMORY IMPAIRMENT [None]
